FAERS Safety Report 7396623-0 (Version None)
Quarter: 2011Q2

REPORT INFORMATION
  Report Type: 
  Country: None (occurrence: None)
  Receive Date: 20110406
  Receipt Date: 20110324
  Transmission Date: 20111010
  Serious: Yes (Other)
  Sender: FDA-Public Use
  Company Number: PHHY2011US24273

PATIENT
  Sex: Female

DRUGS (2)
  1. DIOVAN HCT [Suspect]
     Dosage: 320 MG OF VALS AND 25 MG OF HYD, BID
     Route: 048
  2. METFORMIN [Concomitant]

REACTIONS (3)
  - CARDIAC DISORDER [None]
  - LOSS OF CONSCIOUSNESS [None]
  - DIZZINESS [None]
